FAERS Safety Report 10573830 (Version 2)
Quarter: 2014Q4

REPORT INFORMATION
  Report Type: Spontaneous
  Country: US (occurrence: US)
  Receive Date: 20141110
  Receipt Date: 20141216
  Transmission Date: 20150529
  Serious: No
  Sender: FDA-Public Use
  Company Number: US-GLAXOSMITHKLINE-US2014009869

PATIENT
  Age: 54 Year
  Sex: Female

DRUGS (7)
  1. BLOOD PRESSURE MED [Concomitant]
  2. CLARITIN (ALLERGY MEDICATION NOS) [Concomitant]
  3. CHOLESTEROL [Concomitant]
     Active Substance: CHOLESTEROL
  4. POTASSIUM [Concomitant]
     Active Substance: POTASSIUM
  5. ADVAIR DISKUS [Suspect]
     Active Substance: FLUTICASONE PROPIONATE\SALMETEROL XINAFOATE
     Indication: RESPIRATORY DISORDER
     Dosage: 1 PUFF(S), BID
     Route: 055
     Dates: start: 201409
  6. FUROSEMIDE. [Concomitant]
     Active Substance: FUROSEMIDE
  7. PROAIR HFA [Concomitant]
     Active Substance: ALBUTEROL SULFATE

REACTIONS (3)
  - Dyspnoea [Unknown]
  - Drug ineffective [Unknown]
  - Product quality issue [Unknown]

NARRATIVE: CASE EVENT DATE: 20141013
